FAERS Safety Report 19935501 (Version 1)
Quarter: 2021Q4

REPORT INFORMATION
  Report Type: Spontaneous
  Country: FR (occurrence: FR)
  Receive Date: 20211009
  Receipt Date: 20211009
  Transmission Date: 20220303
  Serious: Yes (Congenital Anomaly, Other)
  Sender: FDA-Public Use
  Company Number: FR-ABBVIE-21K-056-4106265-00

PATIENT
  Sex: Male
  Weight: 3.41 kg

DRUGS (2)
  1. VALPROATE SODIUM [Suspect]
     Active Substance: VALPROATE SODIUM
     Indication: Maternal exposure timing unspecified
     Route: 064
  2. KEPPRA [Concomitant]
     Active Substance: LEVETIRACETAM
     Indication: Product used for unknown indication

REACTIONS (36)
  - Talipes [Unknown]
  - Hypertelorism [Unknown]
  - Dysmorphism [Unknown]
  - Hypertonia [Unknown]
  - Fine motor skill dysfunction [Unknown]
  - Coordination abnormal [Unknown]
  - Language disorder [Unknown]
  - Aggression [Unknown]
  - Frustration tolerance decreased [Unknown]
  - Learning disability [Unknown]
  - Psychomotor hyperactivity [Unknown]
  - Dyspraxia [Unknown]
  - Visual impairment [Unknown]
  - Psychomotor retardation [Unknown]
  - Visuospatial deficit [Unknown]
  - Learning disorder [Unknown]
  - Intellectual disability [Unknown]
  - Memory impairment [Unknown]
  - Joint laxity [Unknown]
  - Disinhibition [Unknown]
  - Muscle tone disorder [Unknown]
  - Impulsive behaviour [Unknown]
  - Ear malformation [Unknown]
  - Lip disorder [Unknown]
  - Ear disorder [Unknown]
  - Regurgitation [Unknown]
  - Initial insomnia [Unknown]
  - Middle insomnia [Unknown]
  - Oropharyngeal discomfort [Unknown]
  - Anxiety [Unknown]
  - Nasal disorder [Unknown]
  - Eating disorder [Unknown]
  - Skin disorder [Unknown]
  - Attention deficit hyperactivity disorder [Unknown]
  - Autism spectrum disorder [Unknown]
  - Foetal exposure during pregnancy [Unknown]

NARRATIVE: CASE EVENT DATE: 20070318
